FAERS Safety Report 9819386 (Version 2)
Quarter: 2014Q1

REPORT INFORMATION
  Report Type: Report from Study
  Country: US (occurrence: US)
  Receive Date: 20140115
  Receipt Date: 20140218
  Transmission Date: 20141002
  Serious: Yes (Hospitalization)
  Sender: FDA-Public Use
  Company Number: US-ABBVIE-14P-163-1187668-00

PATIENT
  Age: 50 Year
  Sex: Male
  Weight: 113.5 kg

DRUGS (4)
  1. ANDROGEL [Suspect]
     Indication: KLINEFELTER^S SYNDROME
     Dosage: DAILY TO SKIN
     Dates: start: 200508
  2. SEROQUEL [Concomitant]
     Indication: INSOMNIA
  3. LAMOTRIGINE [Concomitant]
     Indication: DEPRESSION
  4. LAMOTRIGINE [Concomitant]
     Indication: BIPOLAR DISORDER

REACTIONS (7)
  - Back injury [Not Recovered/Not Resolved]
  - Abasia [Not Recovered/Not Resolved]
  - Nerve injury [Not Recovered/Not Resolved]
  - Nerve injury [Not Recovered/Not Resolved]
  - Intervertebral disc disorder [Not Recovered/Not Resolved]
  - Hypoaesthesia [Not Recovered/Not Resolved]
  - Back pain [Not Recovered/Not Resolved]
